FAERS Safety Report 16877725 (Version 1)
Quarter: 2019Q4

REPORT INFORMATION
  Report Type: Report from Study
  Country: JP (occurrence: JP)
  Receive Date: 20191002
  Receipt Date: 20191002
  Transmission Date: 20200122
  Serious: Yes (Hospitalization, Other)
  Sender: FDA-Public Use
  Company Number: JP-AMGEN-JPNNI2017155986

PATIENT
  Age: 90 Year
  Sex: Male
  Weight: 49 kg

DRUGS (23)
  1. PEGFILGRASTIM [Suspect]
     Active Substance: PEGFILGRASTIM
     Indication: COLONY STIMULATING FACTOR THERAPY
     Dosage: 3.6 MILLIGRAM
     Route: 058
     Dates: start: 20151112, end: 20151112
  2. THERARUBICIN [PIRARUBICIN HYDROCHLORIDE] [Concomitant]
     Indication: NON-HODGKIN^S LYMPHOMA STAGE IV
     Dosage: UNK
     Route: 041
  3. ONCOVIN [Concomitant]
     Active Substance: VINCRISTINE SULFATE
     Indication: NON-HODGKIN^S LYMPHOMA STAGE IV
     Dosage: UNK
     Route: 041
  4. RITUXAN [Concomitant]
     Active Substance: RITUXIMAB
     Dosage: 500 MILLIGRAM
     Route: 041
     Dates: start: 20151130, end: 20151130
  5. RITUXAN [Concomitant]
     Active Substance: RITUXIMAB
     Dosage: 500 MILLIGRAM
     Route: 041
     Dates: start: 20151224, end: 20151224
  6. PEGFILGRASTIM [Suspect]
     Active Substance: PEGFILGRASTIM
     Dosage: 3.6 MILLIGRAM
     Route: 058
     Dates: start: 20151203, end: 20151203
  7. PEGFILGRASTIM [Suspect]
     Active Substance: PEGFILGRASTIM
     Dosage: 3.6 MILLIGRAM
     Route: 058
     Dates: start: 20151228, end: 20151228
  8. RITUXAN [Concomitant]
     Active Substance: RITUXIMAB
     Indication: NON-HODGKIN^S LYMPHOMA STAGE IV
     Dosage: UNK
     Route: 041
  9. THERARUBICIN [PIRARUBICIN HYDROCHLORIDE] [Concomitant]
     Dosage: 45 MILLIGRAM
     Route: 041
     Dates: start: 20151201, end: 20151201
  10. THERARUBICIN [PIRARUBICIN HYDROCHLORIDE] [Concomitant]
     Dosage: 45 MILLIGRAM
     Route: 041
     Dates: start: 20151225, end: 20151225
  11. ENDOXAN [CYCLOPHOSPHAMIDE] [Concomitant]
     Active Substance: CYCLOPHOSPHAMIDE
     Indication: NON-HODGKIN^S LYMPHOMA STAGE IV
     Dosage: UNK
     Route: 041
  12. ENDOXAN [CYCLOPHOSPHAMIDE] [Concomitant]
     Active Substance: CYCLOPHOSPHAMIDE
     Dosage: 640 MILLIGRAM
     Route: 041
     Dates: start: 20151201, end: 20151201
  13. THERARUBICIN [PIRARUBICIN HYDROCHLORIDE] [Concomitant]
     Dosage: 45 MILLIGRAM
     Route: 041
     Dates: start: 20151110, end: 20151110
  14. ONCOVIN [Concomitant]
     Active Substance: VINCRISTINE SULFATE
     Dosage: 1 MILLIGRAM
     Route: 041
     Dates: start: 20151201, end: 20151201
  15. RITUXAN [Concomitant]
     Active Substance: RITUXIMAB
     Dosage: 500 MILLIGRAM
     Route: 041
     Dates: start: 20151109, end: 20151109
  16. ISCOTIN [Concomitant]
     Active Substance: ISONIAZID
     Indication: PRODUCT USED FOR UNKNOWN INDICATION
     Dosage: UNK
     Route: 048
  17. ONCOVIN [Concomitant]
     Active Substance: VINCRISTINE SULFATE
     Dosage: 1 MILLIGRAM
     Route: 041
     Dates: start: 20151110, end: 20151110
  18. BACTRAMIN [Concomitant]
     Active Substance: SULFAMETHOXAZOLE\TRIMETHOPRIM
     Indication: PRODUCT USED FOR UNKNOWN INDICATION
     Dosage: UNK
     Route: 048
  19. ENDOXAN [CYCLOPHOSPHAMIDE] [Concomitant]
     Active Substance: CYCLOPHOSPHAMIDE
     Dosage: 640 MILLIGRAM
     Route: 041
     Dates: start: 20151110, end: 20151110
  20. ENDOXAN [CYCLOPHOSPHAMIDE] [Concomitant]
     Active Substance: CYCLOPHOSPHAMIDE
     Dosage: 640 MILLIGRAM
     Route: 041
     Dates: start: 20151225, end: 20151225
  21. ONCOVIN [Concomitant]
     Active Substance: VINCRISTINE SULFATE
     Dosage: 1 MILLIGRAM
     Route: 041
     Dates: start: 20151225, end: 20151225
  22. FEBURIC [Concomitant]
     Active Substance: FEBUXOSTAT
     Indication: PRODUCT USED FOR UNKNOWN INDICATION
     Dosage: UNK
     Route: 048
  23. NEXIUM [Concomitant]
     Active Substance: ESOMEPRAZOLE MAGNESIUM
     Indication: GASTROOESOPHAGEAL REFLUX DISEASE
     Dosage: UNK
     Route: 048

REACTIONS (2)
  - Blood lactate dehydrogenase increased [Recovered/Resolved]
  - Pneumonia [Recovered/Resolved]

NARRATIVE: CASE EVENT DATE: 20151120
